FAERS Safety Report 6836606-X (Version None)
Quarter: 2010Q3

REPORT INFORMATION
  Report Type: 
  Country: None (occurrence: None)
  Receive Date: 20100713
  Receipt Date: 20100706
  Transmission Date: 20110219
  Serious: Yes (Other)
  Sender: FDA-Public Use
  Company Number: PHHY2010US44455

PATIENT
  Sex: Female

DRUGS (1)
  1. FOCALIN XR [Suspect]
     Dosage: 10 MG, UNK

REACTIONS (3)
  - EYE OPERATION [None]
  - OCULAR HYPERAEMIA [None]
  - VISUAL IMPAIRMENT [None]
